FAERS Safety Report 9908727 (Version 5)
Quarter: 2014Q2

REPORT INFORMATION
  Report Type: Spontaneous
  Country: US (occurrence: US)
  Receive Date: 20140219
  Receipt Date: 20140605
  Transmission Date: 20141212
  Serious: No
  Sender: FDA-Public Use
  Company Number: US-PFIZER INC-2014045085

PATIENT
  Age: 70 Year
  Sex: Male

DRUGS (18)
  1. SUTENT [Suspect]
     Indication: RENAL CANCER
     Dosage: 25 MG, UNK
     Route: 048
  2. SUTENT [Suspect]
     Dosage: 37.5 MG, UNK
     Route: 048
  3. SUTENT [Suspect]
     Dosage: 50 MG, DAILY X 4 WEEKS, 2 OFF WKS
     Route: 048
     Dates: start: 20140127
  4. ASPIRIN [Concomitant]
     Dosage: UNK
  5. NORVASC [Concomitant]
     Dosage: 10 MG, DAILY
     Route: 048
  6. ALDACTONE [Concomitant]
     Dosage: 50 MG, DAILY
     Route: 048
  7. GLUCOPHAGE XR [Concomitant]
     Dosage: 2000 MG (4 TABLETS OF 500 MG EXTENDED RELEASE TABLET), DAILY
     Route: 048
  8. CATAPRES [Concomitant]
     Dosage: 0.1 MG TABLET
  9. PROCHLORPERAZINE MALEATE [Concomitant]
     Dosage: 10 MG, EVERY 6 HOURS AS NEEDED
     Route: 048
  10. CIALIS [Concomitant]
     Dosage: 10 MG, BEFORE SEXUAL INTERCOURSE
     Route: 048
  11. CRESTOR [Concomitant]
     Dosage: 5 MG, 1X/DAY (AT BEDTIME)
  12. HUMALOG [Concomitant]
     Dosage: 15 IU, 3X/DAY WITH MEALS
     Route: 058
  13. LANTUS [Concomitant]
     Dosage: UNK
     Route: 058
  14. LEVEMIR [Concomitant]
     Dosage: 100 IU/ML, 97 UNITS IN THE MORNING AND 100 UNITS AT BEDTIME
     Route: 058
  15. METFORMIN [Concomitant]
     Dosage: 500 MG, 2 TABLETS AFTER BREAKFAST AND TAKE 3 TABLETS AFTER DINNER
  16. TOPROL XL [Concomitant]
     Dosage: 200 MG, DAILY
     Route: 048
  17. HYDROCHLOROTHIAZIDE, VALSARTAN [Concomitant]
     Dosage: HYDROCHLOROTHIAZIDE 12.5 MG TABLET- VALSARTAN 320 MG
  18. ZOFRAN [Concomitant]
     Dosage: 8 MG, AS NEEDED (EVERY 6 HOURS)
     Route: 048

REACTIONS (11)
  - Chills [Recovered/Resolved]
  - Tremor [Unknown]
  - Feeling cold [Unknown]
  - Hyperhidrosis [Unknown]
  - Stomatitis [Recovered/Resolved]
  - Fatigue [Not Recovered/Not Resolved]
  - Epistaxis [Recovered/Resolved]
  - Nausea [Unknown]
  - Skin exfoliation [Recovering/Resolving]
  - Skin fissures [Recovering/Resolving]
  - Throat irritation [Unknown]
